FAERS Safety Report 6503752-X (Version None)
Quarter: 2009Q4

REPORT INFORMATION
  Report Type: 
  Country: None (occurrence: None)
  Receive Date: 20091216
  Receipt Date: 20091216
  Transmission Date: 20100525
  Serious: Yes (Life-Threatening, Other)
  Sender: FDA-Public Use
  Company Number: None

PATIENT
  Sex: Male
  Weight: 80.7403 kg

DRUGS (1)
  1. AMOXICILLIN [Suspect]
     Indication: ANTI-INFECTIVE THERAPY
     Dosage: 500 MG DRUG

REACTIONS (3)
  - ADVERSE DRUG REACTION [None]
  - AFFECTIVE DISORDER [None]
  - MEMORY IMPAIRMENT [None]
